FAERS Safety Report 23042176 (Version 3)
Quarter: 2023Q4

REPORT INFORMATION
  Report Type: Spontaneous
  Country: PL (occurrence: PL)
  Receive Date: 20231008
  Receipt Date: 20231023
  Transmission Date: 20240109
  Serious: Yes (Death, Life-Threatening, Hospitalization, Other)
  Sender: FDA-Public Use
  Company Number: PL-USP-ICSR-2023-02-04-102_40

PATIENT
  Age: 64 Year
  Sex: Female

DRUGS (12)
  1. OMEPRAZOLE [Suspect]
     Active Substance: OMEPRAZOLE
     Indication: Abdominal pain upper
     Route: 065
  2. OMEPRAZOLE [Suspect]
     Active Substance: OMEPRAZOLE
  3. ACETAMINOPHEN\DIPHENHYDRAMINE [Suspect]
     Active Substance: ACETAMINOPHEN\DIPHENHYDRAMINE
     Indication: Arthralgia
     Dosage: DURING THE NIGHT IN COMBINATION WITH PARACETAMOL. /1 DOSAGE FORM, QD, AT NIGHT/UNK UNK, PRN
     Route: 065
  4. ACETAMINOPHEN\DIPHENHYDRAMINE [Suspect]
     Active Substance: ACETAMINOPHEN\DIPHENHYDRAMINE
  5. ACETAMINOPHEN [Suspect]
     Active Substance: ACETAMINOPHEN
     Indication: Arthralgia
     Dosage: 1000MG 2X/24H DURING THE DAY/1000 MG, BID (2 ?/24 H DURING THE DAY)/1000 MG, QOD
     Route: 065
  6. ACETAMINOPHEN [Suspect]
     Active Substance: ACETAMINOPHEN
  7. ACETAMINOPHEN [Suspect]
     Active Substance: ACETAMINOPHEN
     Dosage: 1000MG 2X/24H DURING THE DAY/1000 MG, BID (2 ?/24 H DURING THE DAY)/1000 MG, QOD
  8. WARFARIN SODIUM [Suspect]
     Active Substance: WARFARIN SODIUM
     Indication: Atrial fibrillation
     Dosage: VARIABLE DOSAGES, ADJUSTED FOR INR VALUES
     Route: 065
  9. WARFARIN SODIUM [Suspect]
     Active Substance: WARFARIN SODIUM
  10. PROPAFENONE HYDROCHLORIDE [Suspect]
     Active Substance: PROPAFENONE HYDROCHLORIDE
     Indication: Atrial fibrillation
     Dosage: 2 X 150 MG/150 MG, BID/150 MG, QOD
  11. METOPROLOL [Suspect]
     Active Substance: METOPROLOL
     Indication: Atrial fibrillation
     Dosage: 1 X 50 MG/50 MG, QD
     Route: 065
  12. CHONDROITIN SULFATE (BOVINE) [Concomitant]
     Active Substance: CHONDROITIN SULFATE (BOVINE)

REACTIONS (6)
  - Subarachnoid haemorrhage [Fatal]
  - Coagulation time prolonged [Fatal]
  - Abdominal pain upper [Fatal]
  - Drug interaction [Fatal]
  - Coagulation time prolonged [Fatal]
  - International normalised ratio abnormal [Unknown]
